FAERS Safety Report 24879841 (Version 1)
Quarter: 2025Q1

REPORT INFORMATION
  Report Type: Spontaneous
  Country: FR (occurrence: FR)
  Receive Date: 20250123
  Receipt Date: 20250123
  Transmission Date: 20250408
  Serious: Yes (Other)
  Sender: FRESENIUS KABI
  Company Number: None

PATIENT
  Age: 65 Year
  Sex: Female
  Weight: 76 kg

DRUGS (3)
  1. PACLITAXEL [Suspect]
     Active Substance: PACLITAXEL
     Indication: Endometrial cancer
     Route: 042
     Dates: start: 20241202, end: 20241202
  2. FAMOTIDINE [Suspect]
     Active Substance: FAMOTIDINE
     Indication: Premedication
     Route: 048
     Dates: start: 20241202, end: 20241202
  3. ONDANSETRON [Suspect]
     Active Substance: ONDANSETRON
     Indication: Premedication
     Route: 048
     Dates: start: 20241202, end: 20241202

REACTIONS (1)
  - Anaphylactic reaction [Recovered/Resolved]

NARRATIVE: CASE EVENT DATE: 20241202
